FAERS Safety Report 4323279-3 (Version None)
Quarter: 2004Q1

REPORT INFORMATION
  Report Type: 
  Country: None (occurrence: None)
  Receive Date: 20040323
  Receipt Date: 20040121
  Transmission Date: 20041129
  Serious: No
  Sender: FDA-Public Use
  Company Number: M04-341-018

PATIENT
  Age: 60 Year
  Sex: Male

DRUGS (2)
  1. VELCADE [Suspect]
  2. DEXAMETHASONE [Concomitant]

REACTIONS (2)
  - DEEP VEIN THROMBOSIS [None]
  - RASH [None]
